FAERS Safety Report 4810088-1 (Version None)
Quarter: 2005Q4

REPORT INFORMATION
  Report Type: 
  Country: None (occurrence: None)
  Receive Date: 20051026
  Receipt Date: 20050406
  Transmission Date: 20060501
  Serious: Yes (Hospitalization)
  Sender: FDA-Public Use
  Company Number: 2005AP02097

PATIENT
  Age: 19539 Day
  Sex: Male
  Weight: 68.3 kg

DRUGS (37)
  1. IRESSA [Suspect]
     Indication: SQUAMOUS CELL CARCINOMA
     Dosage: CONCOMITANT PHASE
     Route: 048
     Dates: start: 20050207, end: 20050307
  2. IRESSA [Suspect]
     Dosage: CONCOMITANT PHASE
     Route: 048
     Dates: start: 20050308, end: 20050321
  3. IRESSA [Suspect]
     Dosage: CONCOMITANT PHASE
     Route: 048
     Dates: start: 20050322, end: 20050101
  4. IRESSA [Suspect]
     Dosage: MAINTENANCE THERAPY PHASE
     Route: 048
     Dates: start: 20050402
  5. CISPLATIN [Suspect]
     Indication: SQUAMOUS CELL CARCINOMA
     Route: 042
     Dates: start: 20050214, end: 20050214
  6. CISPLATIN [Suspect]
     Route: 042
     Dates: start: 20050307, end: 20050307
  7. CISPLATIN [Suspect]
     Route: 042
     Dates: start: 20050330, end: 20050330
  8. RADIOTHERAPY [Suspect]
     Indication: SQUAMOUS CELL CARCINOMA
     Dosage: 2 GY
     Dates: start: 20050214, end: 20050218
  9. RADIOTHERAPY [Suspect]
     Dosage: 2 GY
     Dates: start: 20050221, end: 20050225
  10. RADIOTHERAPY [Suspect]
     Dosage: 2 GY
     Dates: start: 20050228, end: 20050304
  11. RADIOTHERAPY [Suspect]
     Dosage: 2 GY
     Dates: start: 20050307, end: 20050311
  12. RADIOTHERAPY [Suspect]
     Dosage: 2 GY
     Dates: start: 20050314, end: 20050318
  13. RADIOTHERAPY [Suspect]
     Dosage: 2 GY
     Dates: start: 20050321, end: 20050325
  14. RADIOTHERAPY [Suspect]
     Dosage: 2 GY
     Dates: start: 20050329, end: 20050402
  15. RYTNONORN [Concomitant]
     Indication: ARRHYTHMIA
     Route: 048
  16. CORUNO [Concomitant]
     Indication: ISCHAEMIC CARDIOMYOPATHY
  17. LODIXAL [Concomitant]
     Indication: ISCHAEMIC CARDIOMYOPATHY
  18. LIPITOR [Concomitant]
     Indication: HYPERCHOLESTEROLAEMIA
  19. ASAFLOW [Concomitant]
     Indication: INFARCTION
     Route: 048
  20. GLYVENOL [Concomitant]
     Indication: VARICOSE VEIN
     Route: 048
  21. COVERSYL [Concomitant]
     Indication: HYPERTENSION
  22. TRAMADOL HCL [Concomitant]
     Indication: CANCER PAIN
     Route: 048
  23. LYSANXIA [Concomitant]
     Indication: ANXIETY
     Route: 048
     Dates: start: 20050209
  24. ROBINOL [Concomitant]
     Indication: ANXIETY
     Route: 042
     Dates: start: 20050209
  25. MOVICOL [Concomitant]
     Indication: CONSTIPATION
     Route: 048
     Dates: start: 20050223
  26. MORPHINE [Concomitant]
     Indication: PAIN
     Route: 048
     Dates: start: 20050201, end: 20050223
  27. MORPHINE [Concomitant]
     Route: 048
     Dates: start: 20050223, end: 20050301
  28. MORPHINE [Concomitant]
     Route: 048
     Dates: start: 20050301, end: 20050322
  29. MORPHINE [Concomitant]
     Route: 048
     Dates: start: 20050322, end: 20050325
  30. MORPHINE [Concomitant]
     Route: 048
     Dates: start: 20050325, end: 20050329
  31. MORPHINE [Concomitant]
     Route: 048
     Dates: start: 20050329
  32. ISOBETADIN [Concomitant]
     Indication: MUCOSAL INFLAMMATION
     Route: 048
     Dates: start: 20050223, end: 20050301
  33. AUGMENTIN '125' [Concomitant]
     Indication: PYREXIA
     Route: 048
     Dates: start: 20050309
  34. LYSOMUCIL [Concomitant]
     Indication: COUGH
     Route: 055
     Dates: start: 20050311
  35. PRIMPERAN INJ [Concomitant]
     Indication: NAUSEA
     Route: 048
     Dates: start: 20050322
  36. DAFALGAN [Concomitant]
     Indication: PAIN
     Route: 048
     Dates: start: 20050325, end: 20050329
  37. KAMILLOSAN [Concomitant]
     Indication: MUCOSAL INFLAMMATION
     Dates: start: 20050325

REACTIONS (1)
  - RENAL FAILURE [None]
